FAERS Safety Report 9622531 (Version 2)
Quarter: 2013Q4

REPORT INFORMATION
  Report Type: Spontaneous
  Country: US (occurrence: US)
  Receive Date: 20131015
  Receipt Date: 20131015
  Transmission Date: 20140711
  Serious: No
  Sender: FDA-Public Use
  Company Number: US-PURDUE-USA-2012-0085942

PATIENT
  Sex: Male

DRUGS (2)
  1. BUTRANS [Suspect]
     Indication: PAIN
     Dosage: 10 MCG/HR, UNK
     Route: 062
     Dates: start: 20120127, end: 20120222
  2. VICODIN [Concomitant]
     Indication: PAIN
     Dosage: 5/500MG UNK

REACTIONS (2)
  - Inadequate analgesia [Unknown]
  - Lethargy [Unknown]
